FAERS Safety Report 15438792 (Version 3)
Quarter: 2019Q1

REPORT INFORMATION
  Report Type: Report from Study
  Country: US (occurrence: US)
  Receive Date: 20180928
  Receipt Date: 20190111
  Transmission Date: 20190417
  Serious: No
  Sender: FDA-Public Use
  Company Number: PHHY2018US108963

PATIENT
  Sex: Female

DRUGS (1)
  1. AFINITOR [Suspect]
     Active Substance: EVEROLIMUS
     Indication: PRODUCT USED FOR UNKNOWN INDICATION
     Dosage: UNK
     Route: 065

REACTIONS (8)
  - Stomatitis [Unknown]
  - Hypersomnia [Unknown]
  - Arthralgia [Unknown]
  - Sputum increased [Unknown]
  - Pruritus [Unknown]
  - Diarrhoea [Unknown]
  - Weight decreased [Unknown]
  - Feeding disorder [Unknown]
